FAERS Safety Report 9586824 (Version 1)
Quarter: 2013Q4

REPORT INFORMATION
  Report Type: Spontaneous
  Country: US (occurrence: None)
  Receive Date: 20131001
  Receipt Date: 20131001
  Transmission Date: 20140711
  Serious: Yes (Hospitalization)
  Sender: FDA-Public Use
  Company Number: 54973 AE # 1507

PATIENT
  Age: 77 Year
  Sex: Female

DRUGS (1)
  1. HYLAND^S LEG CRAMPS CAPLETS [Suspect]
     Indication: MUSCLE SPASMS
     Dosage: 1 CAP BID X 3 MOS.

REACTIONS (4)
  - Pyrexia [None]
  - White blood cell count increased [None]
  - Hepatic enzyme increased [None]
  - Weight decreased [None]
